FAERS Safety Report 24067208 (Version 2)
Quarter: 2024Q3

REPORT INFORMATION
  Report Type: Spontaneous
  Country: CN (occurrence: CN)
  Receive Date: 20240709
  Receipt Date: 20240919
  Transmission Date: 20241016
  Serious: Yes (Hospitalization)
  Sender: ROCHE
  Company Number: CN-ROCHE-10000013899

PATIENT
  Age: 20 Month
  Sex: Male
  Weight: 12.2 kg

DRUGS (1)
  1. EMICIZUMAB [Suspect]
     Active Substance: EMICIZUMAB
     Indication: Factor VIII deficiency
     Dosage: MAINTENANCE DOSE: 30 MG/TIME MONTH
     Route: 065

REACTIONS (4)
  - Fall [Unknown]
  - Skull fractured base [Unknown]
  - Skull fracture [Unknown]
  - Off label use [Unknown]

NARRATIVE: CASE EVENT DATE: 20240101
